FAERS Safety Report 4294165-2 (Version None)
Quarter: 2004Q1

REPORT INFORMATION
  Report Type: 
  Country: None (occurrence: None)
  Receive Date: 20040213
  Receipt Date: 19931109
  Transmission Date: 20041129
  Serious: Yes (Hospitalization)
  Sender: FDA-Public Use
  Company Number: USA/93/04258/PLO

PATIENT
  Age: 24 Year
  Sex: Female

DRUGS (1)
  1. PARLODEL [Suspect]
     Indication: SUPPRESSED LACTATION
     Dosage: UNSPECIFIED
     Route: 048

REACTIONS (15)
  - AGGRESSION [None]
  - CARDIOMEGALY [None]
  - ELECTROCARDIOGRAM ABNORMAL [None]
  - ELECTROCARDIOGRAM ST-T CHANGE [None]
  - ELECTROCARDIOGRAM T WAVE ABNORMAL [None]
  - EMOTIONAL DISTRESS [None]
  - FEELING ABNORMAL [None]
  - HEADACHE [None]
  - HEMIANOPIA [None]
  - HEMIANOPIA HOMONYMOUS [None]
  - HYPERTENSIVE CRISIS [None]
  - HYPOKALAEMIA [None]
  - NONSPECIFIC REACTION [None]
  - PAIN [None]
  - SINUS BRADYCARDIA [None]
